FAERS Safety Report 23115085 (Version 2)
Quarter: 2023Q4

REPORT INFORMATION
  Report Type: Spontaneous
  Country: US (occurrence: US)
  Receive Date: 20231027
  Receipt Date: 20231108
  Transmission Date: 20240110
  Serious: Yes (Hospitalization, Other)
  Sender: FDA-Public Use
  Company Number: US-SANDOZ-SDZ2023US044354

PATIENT
  Sex: Male

DRUGS (5)
  1. CLOPIDOGREL [Suspect]
     Active Substance: CLOPIDOGREL BISULFATE
     Indication: Product used for unknown indication
     Route: 065
  2. ENTRESTO [Suspect]
     Active Substance: SACUBITRIL\VALSARTAN
     Dosage: 1 DOSAGE FORM, BID (24/26 MG, BID)
     Route: 048
     Dates: start: 202309
  3. ENTRESTO [Suspect]
     Active Substance: SACUBITRIL\VALSARTAN
     Indication: Cardiac failure chronic
     Dosage: 24/26MG
     Route: 065
     Dates: start: 202309
  4. LOSARTAN [Suspect]
     Active Substance: LOSARTAN
     Indication: Product used for unknown indication
     Route: 065
  5. JARDIANCE [Concomitant]
     Active Substance: EMPAGLIFLOZIN
     Indication: Product used for unknown indication
     Dosage: UNK
     Route: 065

REACTIONS (13)
  - Pneumonia [Unknown]
  - Stent placement [Unknown]
  - Panic attack [Unknown]
  - Fluid retention [Unknown]
  - Weight decreased [Unknown]
  - Feeling of despair [Recovering/Resolving]
  - Feeling abnormal [Unknown]
  - Dyspnoea exertional [Unknown]
  - Anxiety [Unknown]
  - Insomnia [Unknown]
  - Dyspnoea [Unknown]
  - Contraindicated product administered [Unknown]
  - Nervousness [Recovering/Resolving]
